FAERS Safety Report 17065546 (Version 2)
Quarter: 2019Q4

REPORT INFORMATION
  Report Type: Spontaneous
  Country: FR (occurrence: FR)
  Receive Date: 20191122
  Receipt Date: 20191126
  Transmission Date: 20200122
  Serious: Yes (Hospitalization, Other)
  Sender: FDA-Public Use
  Company Number: FR-GILEAD-2019-0434917

PATIENT
  Age: 50 Year
  Sex: Female
  Weight: 74 kg

DRUGS (3)
  1. CAYSTON [Suspect]
     Active Substance: AZTREONAM
     Indication: RESPIRATORY FAILURE
     Route: 065
  2. COLIMYCINE [BENZYLPENICILLIN POTASSIUM;COLISTIMETHATE SODIUM] [Concomitant]
     Active Substance: COLISTIMETHATE SODIUM\PENICILLIN G POTASSIUM
  3. CAYSTON [Suspect]
     Active Substance: AZTREONAM
     Indication: BRONCHIAL DISORDER

REACTIONS (4)
  - Off label use [Recovered/Resolved]
  - Respiratory failure [Not Recovered/Not Resolved]
  - Depression [Not Recovered/Not Resolved]
  - Intentional product use issue [Recovered/Resolved]

NARRATIVE: CASE EVENT DATE: 20191022
